FAERS Safety Report 10554338 (Version 3)
Quarter: 2018Q1

REPORT INFORMATION
  Report Type: Spontaneous
  Country: US (occurrence: US)
  Receive Date: 20141030
  Receipt Date: 20180314
  Transmission Date: 20180508
  Serious: Yes (Life-Threatening, Hospitalization, Other)
  Sender: FDA-Public Use
  Company Number: US-ELI_LILLY_AND_COMPANY-US201410010583

PATIENT
  Age: 48 Year
  Sex: Male
  Weight: 93.4 kg

DRUGS (55)
  1. DEPO-TESTOSTERONE [Suspect]
     Active Substance: TESTOSTERONE CYPIONATE
     Indication: BLOOD TESTOSTERONE DECREASED
     Dosage: UNK, OTHER
     Route: 065
     Dates: start: 2013
  2. NITROSTAT [Concomitant]
     Active Substance: NITROGLYCERIN
     Dosage: 0.4 MG, UNKNOWN
     Route: 060
  3. PRILOSEC [Concomitant]
     Active Substance: OMEPRAZOLE MAGNESIUM
     Dosage: 20 MG, QD
     Route: 065
  4. HIDROCORTISONA                     /00028601/ [Concomitant]
     Active Substance: HYDROCORTISONE
     Dosage: UNK, UNKNOWN
     Route: 048
  5. HIDROCORTISONA                     /00028601/ [Concomitant]
     Active Substance: HYDROCORTISONE
     Dosage: UNK, UNKNOWN
     Route: 048
  6. DEPAKOTE [Concomitant]
     Active Substance: DIVALPROEX SODIUM
     Dosage: 500 MG, QD
     Route: 065
  7. LORTAB [Concomitant]
     Active Substance: ACETAMINOPHEN\HYDROCODONE BITARTRATE
     Route: 065
  8. LYRICA [Concomitant]
     Active Substance: PREGABALIN
     Dosage: UNK UNK, QD
     Route: 065
  9. RESTORIL [Concomitant]
     Active Substance: TEMAZEPAM
     Dosage: 30 MG, UNKNOWN
     Route: 065
  10. MIRALAX [Concomitant]
     Active Substance: POLYETHYLENE GLYCOL 3350
     Dosage: UNK, BID
     Route: 065
  11. DILAUDID [Concomitant]
     Active Substance: HYDROMORPHONE HYDROCHLORIDE
     Dosage: 2 MG, PRN
     Route: 048
  12. FLOMAX [Concomitant]
     Active Substance: TAMSULOSIN HYDROCHLORIDE
     Dosage: 0.4 MG, EACH EVENING
     Route: 048
  13. IMDUR [Concomitant]
     Active Substance: ISOSORBIDE MONONITRATE
     Dosage: 30 MG, QD
     Route: 065
  14. SOMA [Concomitant]
     Active Substance: CARISOPRODOL
     Dosage: 350 MG, UNKNOWN
     Route: 065
  15. SKELAXIN [Concomitant]
     Active Substance: METAXALONE
     Dosage: 800 MG, UNKNOWN
     Route: 065
  16. CARDIZEM [Concomitant]
     Active Substance: DILTIAZEM HYDROCHLORIDE
     Dosage: 120 MG, UNKNOWN
     Route: 065
  17. ALDACTONE [Concomitant]
     Active Substance: SPIRONOLACTONE
     Dosage: 25 MG, QD
     Route: 065
  18. MEDROL [Concomitant]
     Active Substance: METHYLPREDNISOLONE
     Dosage: UNK, UNKNOWN
     Route: 065
  19. LIPITOR [Concomitant]
     Active Substance: ATORVASTATIN CALCIUM
     Dosage: 80 MG, QD
     Route: 048
  20. SYNTHROID [Concomitant]
     Active Substance: LEVOTHYROXINE SODIUM
     Dosage: 112 UG, DAILY
     Route: 048
  21. VERELAN [Concomitant]
     Active Substance: VERAPAMIL HYDROCHLORIDE
     Dosage: 120 MG, QD
     Route: 048
  22. LOVAZA [Concomitant]
     Active Substance: OMEGA-3-ACID ETHYL ESTERS
     Dosage: 1 G, BID
     Route: 065
  23. LEVOFLOXACIN. [Concomitant]
     Active Substance: LEVOFLOXACIN
     Dosage: UNK, UNKNOWN
     Route: 065
  24. AXIRON [Suspect]
     Active Substance: TESTOSTERONE
     Indication: BLOOD TESTOSTERONE DECREASED
     Dosage: UNK UNK, UNKNOWN
     Route: 065
     Dates: start: 20120822, end: 201312
  25. ANDROGEL [Suspect]
     Active Substance: TESTOSTERONE
     Dosage: UNK UNK, UNKNOWN
     Route: 065
     Dates: start: 20121115, end: 20130326
  26. COREG [Concomitant]
     Active Substance: CARVEDILOL
     Dosage: 6.25 MG, BID
     Route: 065
  27. LIPITOR [Concomitant]
     Active Substance: ATORVASTATIN CALCIUM
     Dosage: 80 MG, QD
     Route: 065
  28. POTASSIUM CHLORIDE. [Concomitant]
     Active Substance: POTASSIUM CHLORIDE
     Dosage: 20 MEQ, PRN
     Route: 065
  29. SYNTHROID [Concomitant]
     Active Substance: LEVOTHYROXINE SODIUM
     Dosage: 125 UG, QD
     Route: 048
  30. VERELAN [Concomitant]
     Active Substance: VERAPAMIL HYDROCHLORIDE
     Dosage: 120 MG, QD
     Route: 065
  31. CIALIS [Concomitant]
     Active Substance: TADALAFIL
     Dosage: UNK, PRN
     Route: 065
  32. SENOKOT [Concomitant]
     Active Substance: SENNOSIDES
     Dosage: UNK, DAILY
     Route: 048
  33. FLEXERIL [Concomitant]
     Active Substance: CYCLOBENZAPRINE HYDROCHLORIDE
     Dosage: 10 MG, TID
     Route: 048
  34. ANDROGEL [Suspect]
     Active Substance: TESTOSTERONE
     Dosage: UNK UNK, UNKNOWN
     Route: 065
     Dates: start: 2003, end: 2013
  35. AVODART [Concomitant]
     Active Substance: DUTASTERIDE
     Dosage: 0.5 MG, UNKNOWN
     Route: 065
  36. DILAUDID [Concomitant]
     Active Substance: HYDROMORPHONE HYDROCHLORIDE
     Dosage: 4 MG, TID
     Route: 048
  37. COLACE [Concomitant]
     Active Substance: DOCUSATE SODIUM
     Dosage: 100 MG, QD
  38. LISINOPRIL. [Concomitant]
     Active Substance: LISINOPRIL
     Dosage: 5 MG, QD
     Route: 065
  39. PROZAC [Concomitant]
     Active Substance: FLUOXETINE HYDROCHLORIDE
     Dosage: 20 MG, QD
     Route: 048
  40. CYCLOBENZAPRINE. [Concomitant]
     Active Substance: CYCLOBENZAPRINE
     Dosage: 10 MG, UNKNOWN
     Route: 065
  41. CIALIS [Concomitant]
     Active Substance: TADALAFIL
     Dosage: 10 MG, QOD
     Route: 048
  42. LACTULOSE. [Concomitant]
     Active Substance: LACTULOSE
     Dosage: UNK UNK, UNKNOWN
     Route: 065
  43. MAGNESII OXIDUM [Concomitant]
     Dosage: 400 MG, QD
     Route: 065
  44. CEFTIN [Concomitant]
     Active Substance: CEFUROXIME AXETIL
     Dosage: 500 MG, BID
     Route: 065
  45. RANEXA [Concomitant]
     Active Substance: RANOLAZINE
     Dosage: 500 MG, BID
     Route: 065
  46. EFFIENT [Concomitant]
     Active Substance: PRASUGREL HYDROCHLORIDE
     Dosage: 10 MG, QD
     Route: 048
  47. ASPIRIN                            /00002701/ [Concomitant]
     Active Substance: ASPIRIN
     Indication: ANTICOAGULANT THERAPY
     Dosage: UNK, DAILY
     Route: 048
  48. ASPIRIN                            /00002701/ [Concomitant]
     Active Substance: ASPIRIN
     Dosage: 81 MG, DAILY
     Route: 048
  49. TOPROL XL [Concomitant]
     Active Substance: METOPROLOL SUCCINATE
     Dosage: 25 MG, QD
     Route: 065
  50. PROMETHAZINE [Concomitant]
     Active Substance: PROMETHAZINE\PROMETHAZINE HYDROCHLORIDE
     Dosage: 12.5 MG, PRN
     Route: 048
  51. ANDROGEL [Suspect]
     Active Substance: TESTOSTERONE
     Indication: BLOOD TESTOSTERONE DECREASED
     Dosage: UNK UNK, UNKNOWN
     Route: 065
     Dates: start: 20111020, end: 20120716
  52. NEXIUM [Concomitant]
     Active Substance: ESOMEPRAZOLE MAGNESIUM
     Dosage: 40 MG, QD
  53. LISINOPRIL. [Concomitant]
     Active Substance: LISINOPRIL
     Dosage: 10 UNK, UNK
     Route: 048
  54. FIORICET [Concomitant]
     Active Substance: ACETAMINOPHEN\BUTALBITAL\CAFFEINE
     Route: 065
  55. ZOFRAN [Concomitant]
     Active Substance: ONDANSETRON HYDROCHLORIDE
     Dosage: 8 MG, TID
     Route: 065

REACTIONS (17)
  - Cerebrovascular disorder [Unknown]
  - Thrombosis [Unknown]
  - Paronychia [Unknown]
  - Blood glucose increased [Unknown]
  - Coronary artery disease [Unknown]
  - Cardiomegaly [Unknown]
  - Cerebrovascular disorder [Unknown]
  - Cardiac disorder [Unknown]
  - Hemiplegic migraine [Recovered/Resolved]
  - Pleural effusion [Recovered/Resolved]
  - Chest pain [Recovered/Resolved]
  - Myocardial bridging [Recovered/Resolved]
  - Anaemia [Unknown]
  - Blood sodium decreased [Unknown]
  - Carotid arteriosclerosis [Unknown]
  - Cardiac disorder [Unknown]
  - Pericardial effusion [Recovered/Resolved]

NARRATIVE: CASE EVENT DATE: 20120914
